FAERS Safety Report 9343845 (Version 2)
Quarter: 2013Q3

REPORT INFORMATION
  Report Type: Spontaneous
  Country: US (occurrence: US)
  Receive Date: 20130612
  Receipt Date: 20130717
  Transmission Date: 20140515
  Serious: No
  Sender: FDA-Public Use
  Company Number: US-PFIZER INC-2013173314

PATIENT
  Age: 54 Year
  Sex: Male
  Weight: 129 kg

DRUGS (2)
  1. GLYNASE [Suspect]
     Indication: DIABETES MELLITUS
     Dosage: 12 MG, 2X/DAY
     Route: 048
  2. LANTUS [Concomitant]
     Indication: DIABETES MELLITUS
     Dosage: UNK, 1X/DAY

REACTIONS (1)
  - Drug ineffective [Unknown]
